FAERS Safety Report 4359466-8 (Version None)
Quarter: 2004Q2

REPORT INFORMATION
  Report Type: 
  Country: None (occurrence: None)
  Receive Date: 20040514
  Receipt Date: 20040514
  Transmission Date: 20050107
  Serious: Yes (Hospitalization)
  Sender: FDA-Public Use
  Company Number: None

PATIENT
  Age: 73 Year
  Sex: Male

DRUGS (10)
  1. NIFEDIPINE [Suspect]
     Indication: HYPERTENSION
     Dosage: 90 MG QD
     Dates: start: 20020401
  2. AMITRIPTYLINE HCL [Concomitant]
  3. RABEPRAZOLE SODIUM [Concomitant]
  4. PERCOCET [Concomitant]
  5. FOSINOPRIL SODIUM [Concomitant]
  6. ISOSORBIDE [Concomitant]
  7. FUROSEMIDE [Concomitant]
  8. METOPROLOL [Concomitant]
  9. ZOCOR [Concomitant]
  10. TRAMADOL HCL [Concomitant]

REACTIONS (1)
  - BRADYCARDIA [None]
